FAERS Safety Report 6095885-X (Version None)
Quarter: 2009Q1

REPORT INFORMATION
  Report Type: 
  Country: None (occurrence: None)
  Receive Date: 20090225
  Receipt Date: 20090225
  Transmission Date: 20090719
  Serious: Yes (Life-Threatening, Hospitalization, Disabling)
  Sender: FDA-Public Use
  Company Number: None

PATIENT
  Sex: Female
  Weight: 72.5755 kg

DRUGS (2)
  1. GEODON [Suspect]
     Indication: OBSESSIVE-COMPULSIVE DISORDER
     Dosage: 280 MG DAILY ORAL
     Route: 048
     Dates: start: 20080501
  2. GEODON [Suspect]
     Indication: OBSESSIVE-COMPULSIVE DISORDER
     Dosage: 280 MG DAILY ORAL
     Route: 048
     Dates: start: 20081101

REACTIONS (3)
  - DIARRHOEA [None]
  - ELECTROCARDIOGRAM QT PROLONGED [None]
  - PARADOXICAL DRUG REACTION [None]
